FAERS Safety Report 5416728-0 (Version None)
Quarter: 2007Q3

REPORT INFORMATION
  Report Type: 
  Country: None (occurrence: None)
  Receive Date: 20070816
  Receipt Date: 20070813
  Transmission Date: 20080115
  Serious: Yes (Hospitalization)
  Sender: FDA-Public Use
  Company Number: B0473995A

PATIENT
  Age: 39 Year
  Sex: Female
  Weight: 45 kg

DRUGS (2)
  1. LAPATINIB [Suspect]
     Dosage: 1250MG PER DAY
     Route: 048
     Dates: start: 20070525, end: 20070604
  2. CAPECITABINE [Suspect]
     Dosage: 1500MG TWICE PER DAY
     Route: 048
     Dates: start: 20070525

REACTIONS (4)
  - DIARRHOEA [None]
  - FLUID INTAKE REDUCED [None]
  - GASTRITIS [None]
  - ORAL INTAKE REDUCED [None]
